FAERS Safety Report 14920087 (Version 2)
Quarter: 2018Q3

REPORT INFORMATION
  Report Type: Spontaneous
  Country: US (occurrence: US)
  Receive Date: 20180521
  Receipt Date: 20180822
  Transmission Date: 20181010
  Serious: Yes (Other)
  Sender: FDA-Public Use
  Company Number: US-BAYER-2018-094746

PATIENT
  Age: 43 Year
  Sex: Female
  Weight: 74.38 kg

DRUGS (3)
  1. TYLENOL WITH CODEINE [Concomitant]
     Active Substance: ACETAMINOPHEN\CODEINE PHOSPHATE
  2. DOXYCYCLINE MONOHYDRATE [DOXYCYCLINE MONOHYDRATE] [Concomitant]
     Dosage: 1 DF, BID
     Route: 048
  3. MIRENA [Suspect]
     Active Substance: LEVONORGESTREL
     Dosage: 20 MCG/24HR, CONT
     Route: 015
     Dates: start: 20130110

REACTIONS (4)
  - Menorrhagia [None]
  - Ovarian cyst [None]
  - Menstruation irregular [None]
  - Device dislocation [None]

NARRATIVE: CASE EVENT DATE: 20180418
